FAERS Safety Report 9292492 (Version 1)
Quarter: 2013Q1

REPORT INFORMATION
  Report Type: Spontaneous
  Country: US (occurrence: None)
  Receive Date: 20121212
  Receipt Date: 20121212
  Transmission Date: 20140127
  Serious: No
  Sender: FDA-Public Use
  Company Number: 1210USA008786

PATIENT
  Age: 55 Year
  Sex: Female

DRUGS (3)
  1. VICTRELIS [Suspect]
     Indication: HEPATITIS C
     Route: 048
     Dates: start: 20121005
  2. RIBAVIRIN [Suspect]
  3. PEGASYS [Suspect]

REACTIONS (4)
  - Hypoaesthesia [None]
  - Vision blurred [None]
  - Headache [None]
  - Vertigo [None]
